FAERS Safety Report 4617405-6 (Version None)
Quarter: 2005Q1

REPORT INFORMATION
  Report Type: 
  Country: None (occurrence: None)
  Receive Date: 20050323
  Receipt Date: 20050310
  Transmission Date: 20050727
  Serious: Yes (Hospitalization)
  Sender: FDA-Public Use
  Company Number: CIO05004731

PATIENT
  Age: 76 Year
  Sex: Female
  Weight: 99.8 kg

DRUGS (2)
  1. METAMUCIL-2 [Suspect]
     Dosage: 2 CAPSUL, 1 ONLY FOR 1 DAY,  ORAL
     Route: 048
     Dates: start: 20050222, end: 20050222
  2. ANTIHYPERTENSIVES [Concomitant]

REACTIONS (7)
  - ABDOMINAL DISTENSION [None]
  - BLOOD PRESSURE INCREASED [None]
  - DISCOMFORT [None]
  - DYSPNOEA [None]
  - FOREIGN BODY TRAUMA [None]
  - GASTRIC DISORDER [None]
  - IMPAIRED GASTRIC EMPTYING [None]
